FAERS Safety Report 21119181 (Version 1)
Quarter: 2022Q3

REPORT INFORMATION
  Report Type: Spontaneous
  Country: US (occurrence: None)
  Receive Date: 20220721
  Receipt Date: 20220721
  Transmission Date: 20221027
  Serious: Yes (Death)
  Sender: FDA-Public Use
  Company Number: None

PATIENT
  Age: 65 Year
  Sex: Male
  Weight: 113.40 kg

DRUGS (2)
  1. BARICITINIB [Suspect]
     Active Substance: BARICITINIB
     Dosage: FREQUENCY : DAILY;?
     Dates: end: 20211213
  2. REMDESIVIR [Suspect]
     Active Substance: REMDESIVIR
     Dosage: FREQUENCY : ONCE;?
     Route: 042
     Dates: start: 20211205, end: 20211210

REACTIONS (2)
  - COVID-19 [None]
  - Dyspnoea [None]

NARRATIVE: CASE EVENT DATE: 20211215
